FAERS Safety Report 7547784-1 (Version None)
Quarter: 2011Q2

REPORT INFORMATION
  Report Type: 
  Country: None (occurrence: None)
  Receive Date: 20110615
  Receipt Date: 20110530
  Transmission Date: 20111010
  Serious: Yes (Other)
  Sender: FDA-Public Use
  Company Number: ES-BRISTOL-MYERS SQUIBB COMPANY-15129687

PATIENT
  Age: 73 Year
  Sex: Male
  Weight: 63 kg

DRUGS (4)
  1. CETUXIMAB [Suspect]
     Indication: HEAD AND NECK CANCER
     Dosage: 5MG/ML. 6TH INF. RECENT INF ON 24MAY10
     Route: 042
     Dates: start: 20100419
  2. FLUOROURACIL [Suspect]
     Indication: HEAD AND NECK CANCER
     Dosage: CONT INF FROM DAY 1 TO DAY 4 OF CYCLE. RECENT INF,2ND INF ON 17MAY10
     Route: 042
     Dates: start: 20100419
  3. CISPLATIN [Suspect]
     Indication: HEAD AND NECK CANCER
     Dosage: RECENT INF,2ND INF ON 17MAY10
     Route: 042
     Dates: start: 20100419
  4. CILENGITIDE [Suspect]
     Indication: HEAD AND NECK CANCER
     Dosage: 11TH INF. INTERRUPTED ON 24MAY10(35D),RESTARTED ON 31MAY10
     Route: 042
     Dates: start: 20100419

REACTIONS (1)
  - STOMATITIS [None]
